FAERS Safety Report 14680284 (Version 2)
Quarter: 2018Q2

REPORT INFORMATION
  Report Type: Spontaneous
  Country: GB (occurrence: IT)
  Receive Date: 20180326
  Receipt Date: 20180611
  Transmission Date: 20180711
  Serious: Yes (Other)
  Sender: FDA-Public Use
  Company Number: IT-FRESENIUS KABI-FK201803463

PATIENT
  Age: 78 Year
  Sex: Female

DRUGS (1)
  1. LINEZOLID 2 MG/ML [Suspect]
     Active Substance: LINEZOLID
     Indication: INFECTION
     Dosage: 1200MG
     Route: 042
     Dates: start: 20180305, end: 20180310

REACTIONS (1)
  - Hyponatraemia [Recovered/Resolved]

NARRATIVE: CASE EVENT DATE: 20180308
